FAERS Safety Report 9682639 (Version 2)
Quarter: 2013Q4

REPORT INFORMATION
  Report Type: Spontaneous
  Country: US (occurrence: US)
  Receive Date: 20131112
  Receipt Date: 20131126
  Transmission Date: 20140711
  Serious: Yes (Death, Hospitalization)
  Sender: FDA-Public Use
  Company Number: US-ELI_LILLY_AND_COMPANY-US201311002554

PATIENT
  Age: 62 Year
  Sex: Female
  Weight: 77.1 kg

DRUGS (41)
  1. ALIMTA [Suspect]
     Indication: NON-SMALL CELL LUNG CANCER
     Dosage: 500 MG, UNKNOWN
     Route: 065
     Dates: start: 20130522, end: 20131023
  2. ALIMTA [Suspect]
     Dosage: 100 MG, UNKNOWN
     Route: 065
     Dates: start: 201304, end: 20131023
  3. ALIMTA [Suspect]
     Dosage: 900 MG, UNK
     Route: 042
     Dates: start: 20130522
  4. ALIMTA [Suspect]
     Dosage: 900 MG, UNK
     Route: 042
     Dates: start: 20130522
  5. VITAMIN B12 [Concomitant]
     Dosage: 1000 UG, UNK
     Route: 058
     Dates: start: 20130522, end: 20131101
  6. FOLIC ACID [Concomitant]
     Dosage: 0.4 MG, QD
     Route: 048
     Dates: start: 20130522, end: 20131101
  7. CORTICOSTEROID NOS [Concomitant]
     Dosage: 4 MG, BID
     Route: 048
     Dates: start: 20130522, end: 20131101
  8. SIMVASTATIN [Concomitant]
     Dosage: 20 MG, QD
     Route: 048
  9. OMEPRAZOLE [Concomitant]
     Dosage: 20 MG, QD
     Route: 048
  10. OMEPRAZOLE [Concomitant]
     Dosage: 40 MG, QD
     Route: 048
  11. METOPROLOL [Concomitant]
     Dosage: 50 MG, UNK
  12. LORAZEPAM [Concomitant]
     Dosage: 0.5 MG, PRN
     Route: 048
  13. MOMETASONE [Concomitant]
     Dosage: 0.1 %, PRN
     Route: 061
  14. MOMETASONE [Concomitant]
     Dosage: 50 UG, PRN
  15. ASPIRIN [Concomitant]
     Dosage: 81 MG, QD
     Route: 048
  16. ASPIRIN [Concomitant]
     Dosage: 325 MG, PRN
     Route: 048
  17. FISH OIL [Concomitant]
     Dosage: 1500 MG, QD
     Route: 048
  18. GARLIC [Concomitant]
     Dosage: 1000 MG, QD
     Route: 048
  19. VITAMIN E [Concomitant]
     Dosage: 1000 U, QD
     Route: 048
  20. SUPER B COMPLEX WITH VITAMIN C [Concomitant]
  21. FEXOFENADINE [Concomitant]
     Dosage: 180 MG, QD
     Route: 048
  22. MUCINEX [Concomitant]
     Dosage: 600 MG, QD
     Route: 048
  23. MUCINEX [Concomitant]
     Dosage: 1200 MG, BID
     Route: 048
  24. AMLODIPINE [Concomitant]
     Dosage: 10 MG, QD
     Route: 048
  25. SERTRALINE [Concomitant]
     Dosage: 25 MG, QD
  26. COMBIVENT INHALATION AEROSOL [Concomitant]
     Route: 055
  27. TRAMADOL [Concomitant]
     Dosage: 50 MG, QD
     Route: 048
  28. CELEXA [Concomitant]
     Dosage: 20 MG, QD
     Route: 048
  29. XYLOCAINE [Concomitant]
  30. ONDANSETRON [Concomitant]
     Dosage: 8 MG, TID
     Route: 048
  31. ONDANSETRON [Concomitant]
     Dosage: 4 MG, PRN
     Route: 048
  32. SIMETHICONE [Concomitant]
     Dosage: 80 MG, QD
     Route: 048
  33. CALCIUM [Concomitant]
     Dosage: 500 MG, PRN
     Route: 048
  34. HYDROCODONE [Concomitant]
     Dosage: 5 MG, PRN
     Route: 048
  35. TESSALON PERLES [Concomitant]
     Dosage: 100 MG, PRN
     Route: 048
  36. SPIRIVA [Concomitant]
     Dosage: 18 UG, QD
     Route: 055
  37. XOPENEX HFA [Concomitant]
     Route: 055
  38. LOMOTIL [Concomitant]
  39. DEXAMETHASONE [Concomitant]
     Dosage: 8 MG, QD
     Route: 048
  40. LEVAQUIN [Concomitant]
     Dosage: 500 MG, QD
     Route: 048
  41. BACTRIM [Concomitant]

REACTIONS (3)
  - Malignant neoplasm progression [Fatal]
  - Pyrexia [Unknown]
  - Respiratory failure [Unknown]
